FAERS Safety Report 10401353 (Version 1)
Quarter: 2014Q3

REPORT INFORMATION
  Report Type: Spontaneous
  Country: US (occurrence: US)
  Receive Date: 20140822
  Receipt Date: 20140822
  Transmission Date: 20150326
  Serious: No
  Sender: FDA-Public Use
  Company Number: US-AMGEN-USASP2014063089

PATIENT
  Age: 50 Year
  Sex: Male

DRUGS (1)
  1. ENBREL [Suspect]
     Active Substance: ETANERCEPT
     Indication: RHEUMATOID ARTHRITIS
     Dosage: UNK UNK, ONCE A WEEK
     Route: 065
     Dates: start: 20140805

REACTIONS (1)
  - Asthenia [Not Recovered/Not Resolved]

NARRATIVE: CASE EVENT DATE: 20140818
